FAERS Safety Report 15859634 (Version 2)
Quarter: 2019Q1

REPORT INFORMATION
  Report Type: Spontaneous
  Country: JP (occurrence: JP)
  Receive Date: 20190123
  Receipt Date: 20190306
  Transmission Date: 20190417
  Serious: Yes (Death, Hospitalization, Other)
  Sender: FDA-Public Use
  Company Number: JP-BAYER-2019-012585

PATIENT
  Age: 85 Year
  Sex: Male
  Weight: 63 kg

DRUGS (10)
  1. LANSOPRAZOLE. [Concomitant]
     Active Substance: LANSOPRAZOLE
     Indication: GASTRIC ULCER
     Dosage: DAILY DOSE 15 MG
     Route: 048
     Dates: end: 20190107
  2. PRAVASTATIN SODIUM. [Concomitant]
     Active Substance: PRAVASTATIN SODIUM
     Indication: HYPERLIPIDAEMIA
     Dosage: DAILY DOSE 10 MG
     Route: 048
     Dates: end: 20190107
  3. AMLODIPINE [Concomitant]
     Active Substance: AMLODIPINE BESYLATE
     Indication: HYPERTENSION
     Dosage: DAILY DOSE 5 MG
     Route: 048
     Dates: end: 20190107
  4. CANDESARTAN. [Concomitant]
     Active Substance: CANDESARTAN
     Indication: HYPERTENSION
     Dosage: DAILY DOSE 8 MG
     Route: 048
     Dates: end: 20190107
  5. HEPARINOID [Concomitant]
     Active Substance: CHONDROITIN SULFATE (BOVINE)
     Indication: THERAPEUTIC SKIN CARE TOPICAL
     Dosage: UNK UNK, PRN
     Route: 003
     Dates: end: 20190107
  6. NEXAVAR [Suspect]
     Active Substance: SORAFENIB
     Indication: RENAL CELL CARCINOMA
     Dosage: 200 MG, BID
     Route: 048
     Dates: start: 20181119, end: 20190107
  7. MUCOSOLVAN L [Concomitant]
     Active Substance: AMBROXOL HYDROCHLORIDE
     Indication: COUGH
     Dosage: DAILY DOSE 45 MG
     Route: 048
     Dates: end: 20190107
  8. PIMURO [SENNA ALEXANDRINA] [Concomitant]
     Indication: CONSTIPATION
     Dosage: DAILY DOSE .5 G
     Route: 048
     Dates: end: 20190107
  9. HEPARINOID [Concomitant]
     Active Substance: CHONDROITIN SULFATE (BOVINE)
     Indication: PALMAR-PLANTAR ERYTHRODYSAESTHESIA SYNDROME
  10. ALLOPURINOL. [Concomitant]
     Active Substance: ALLOPURINOL
     Indication: HYPERURICAEMIA
     Dosage: DAILY DOSE 100 MG
     Route: 048
     Dates: end: 20190107

REACTIONS (14)
  - Alanine aminotransferase increased [Fatal]
  - Malaise [None]
  - Depressed level of consciousness [Fatal]
  - Pancreatitis acute [None]
  - Infection [None]
  - Jaundice [Fatal]
  - Hepatitis fulminant [Fatal]
  - Pyrexia [None]
  - Coma hepatic [Fatal]
  - Diarrhoea [None]
  - Decreased appetite [None]
  - Asterixis [Fatal]
  - Aspartate aminotransferase increased [Fatal]
  - Dyspnoea [None]

NARRATIVE: CASE EVENT DATE: 20181218
